FAERS Safety Report 26143337 (Version 2)
Quarter: 2025Q4

REPORT INFORMATION
  Report Type: Report from Study
  Country: EU (occurrence: EU)
  Receive Date: 20251211
  Receipt Date: 20251226
  Transmission Date: 20260118
  Serious: Yes (Other)
  Sender: ABBVIE
  Company Number: EU-ABBVIE-6581432

PATIENT
  Age: 78 Year
  Sex: Female

DRUGS (1)
  1. FOSCARBIDOPA\FOSLEVODOPA [Suspect]
     Active Substance: FOSCARBIDOPA\FOSLEVODOPA
     Indication: Parkinson^s disease
     Dosage: CRN: 0.17 ML/H, CR: 0.30 ML/H, CRH: 0.00 ML/H, ED: 0.30 ML
     Route: 058
     Dates: start: 20251119

REACTIONS (6)
  - Seizure [Recovered/Resolved]
  - Aphasia [Not Recovered/Not Resolved]
  - Condition aggravated [Not Recovered/Not Resolved]
  - Tremor [Unknown]
  - Eye movement disorder [Unknown]
  - Hypokinesia [Recovering/Resolving]

NARRATIVE: CASE EVENT DATE: 20250101
